FAERS Safety Report 24051251 (Version 1)
Quarter: 2024Q3

REPORT INFORMATION
  Report Type: Spontaneous
  Country: CN (occurrence: CN)
  Receive Date: 20240704
  Receipt Date: 20240704
  Transmission Date: 20241017
  Serious: Yes (Death, Life-Threatening)
  Sender: PFIZER
  Company Number: CN-PFIZER INC-PV202400085095

PATIENT
  Age: 81 Year
  Sex: Female

DRUGS (7)
  1. TIGECYCLINE [Suspect]
     Active Substance: TIGECYCLINE
     Indication: Infection
     Dosage: 50 G, 2X/DAY
     Route: 041
     Dates: start: 20230918, end: 20230925
  2. AMIKACIN [Suspect]
     Active Substance: AMIKACIN
     Indication: Infection
     Dosage: 0.4 G, 1X/DAY
     Route: 041
     Dates: start: 20230918, end: 20230925
  3. RO-0622 [Suspect]
     Active Substance: RO-0622
     Dosage: 5 MG, 1X/DAY
     Route: 048
     Dates: start: 20230909, end: 202309
  4. PIPERACILLIN SODIUM\TAZOBACTAM SODIUM [Suspect]
     Active Substance: PIPERACILLIN SODIUM\TAZOBACTAM SODIUM
     Indication: Infection
     Dosage: 4.5 G, 2X/DAY
     Route: 041
     Dates: start: 20230907
  5. OMEPRAZOLE [Concomitant]
     Active Substance: OMEPRAZOLE
     Indication: Antacid therapy
     Dosage: 40 MG, 1X/DAY
     Route: 041
     Dates: start: 20230907
  6. FLUCONAZOLE [Concomitant]
     Active Substance: FLUCONAZOLE
     Indication: Candida infection
     Dosage: 0.4 G, 1X/DAY
     Dates: start: 20230824, end: 20230907
  7. NIRMATRELVIR\RITONAVIR [Concomitant]
     Active Substance: NIRMATRELVIR\RITONAVIR
     Indication: COVID-19 treatment
     Dosage: 400 MG, 2X/DAY
     Route: 048
     Dates: start: 20230914, end: 202309

REACTIONS (1)
  - Toxic epidermal necrolysis [Fatal]

NARRATIVE: CASE EVENT DATE: 20230925
